FAERS Safety Report 5811605-5 (Version None)
Quarter: 2008Q3

REPORT INFORMATION
  Report Type: 
  Country: None (occurrence: None)
  Receive Date: 20080716
  Receipt Date: 20080703
  Transmission Date: 20090109
  Serious: Yes (Hospitalization, Other)
  Sender: FDA-Public Use
  Company Number: JP-ASTRAZENECA-2007SE05002

PATIENT
  Sex: Female
  Weight: 51 kg

DRUGS (5)
  1. BLOPRESS TABLETS 4 [Suspect]
     Indication: HYPERTENSION
     Route: 048
     Dates: start: 19981010
  2. NEORAL [Suspect]
     Route: 048
  3. IMURAN [Concomitant]
     Route: 048
  4. MEDROL [Concomitant]
     Route: 048
  5. EPOGIN [Concomitant]
     Route: 042

REACTIONS (2)
  - DRUG EXPOSURE DURING PREGNANCY [None]
  - OLIGOHYDRAMNIOS [None]
